FAERS Safety Report 24554103 (Version 1)
Quarter: 2024Q4

REPORT INFORMATION
  Report Type: Spontaneous
  Country: IT (occurrence: IT)
  Receive Date: 20241028
  Receipt Date: 20241028
  Transmission Date: 20250115
  Serious: Yes (Other)
  Sender: MERCK
  Company Number: None

PATIENT
  Age: 63 Year
  Sex: Male

DRUGS (9)
  1. VERICIGUAT [Suspect]
     Active Substance: VERICIGUAT
     Indication: Heart failure with reduced ejection fraction
     Dosage: 10 MG, COATED TABLETS 2.5 MG:
     Route: 048
  2. VERICIGUAT [Suspect]
     Active Substance: VERICIGUAT
     Dosage: 5 MG, COATED TABLETS 2.5 MG: 2 TABLETS DAILY IN A  SINGLE ADMINISTRATION
     Route: 048
  3. OMEPRAZOLE [Concomitant]
     Active Substance: OMEPRAZOLE
     Dosage: OMEPRAZEN CPS GASTRORES 20 MG: 1 CPR/DIE
     Route: 048
  4. AMIODARONE HYDROCHLORIDE [Concomitant]
     Active Substance: AMIODARONE HYDROCHLORIDE
     Indication: Tachyarrhythmia
     Dosage: 400 MG, BID
     Route: 048
  5. LASIX [Concomitant]
     Active Substance: FUROSEMIDE
     Dosage: UNK
     Route: 048
     Dates: start: 202303
  6. DAPAGLIFLOZIN [Concomitant]
     Active Substance: DAPAGLIFLOZIN
     Indication: Heart failure with reduced ejection fraction
     Dosage: 10 MG, QD
     Route: 048
  7. ENTRESTO [Concomitant]
     Active Substance: SACUBITRIL\VALSARTAN
     Indication: Heart failure with reduced ejection fraction
     Dosage: 50 MG, COATED TABLETS 24 MG + 26 MG, FILM-COATED TABLET
     Route: 048
  8. NORVASC [Concomitant]
     Active Substance: AMLODIPINE BESYLATE
     Indication: Hypertension
     Dosage: 10 MG, QD
     Route: 048
  9. BISOPROLOL FUMARATE [Concomitant]
     Active Substance: BISOPROLOL FUMARATE
     Indication: Heart failure with reduced ejection fraction
     Dosage: 3.75 MILLIGRAM
     Route: 048

REACTIONS (2)
  - Hypotensive crisis [Recovered/Resolved]
  - Dizziness [Recovered/Resolved]

NARRATIVE: CASE EVENT DATE: 20240201
